FAERS Safety Report 20995296 (Version 2)
Quarter: 2022Q3

REPORT INFORMATION
  Report Type: Spontaneous
  Country: US (occurrence: US)
  Receive Date: 20220622
  Receipt Date: 20220715
  Transmission Date: 20221027
  Serious: No
  Sender: FDA-Public Use
  Company Number: US-TEVA-2022-US-2046941

PATIENT
  Sex: Female

DRUGS (1)
  1. LIDOCAINE [Suspect]
     Active Substance: LIDOCAINE
     Indication: Product used for unknown indication
     Route: 062
     Dates: start: 20220606, end: 20220610

REACTIONS (3)
  - Application site rash [Not Recovered/Not Resolved]
  - Drug ineffective [Unknown]
  - Skin irritation [Unknown]

NARRATIVE: CASE EVENT DATE: 20220609
